FAERS Safety Report 7125408-5 (Version None)
Quarter: 2010Q4

REPORT INFORMATION
  Report Type: 
  Country: None (occurrence: None)
  Receive Date: 20101129
  Receipt Date: 20101118
  Transmission Date: 20110411
  Serious: Yes (Other)
  Sender: FDA-Public Use
  Company Number: US-ROCHE-722762

PATIENT
  Sex: Female
  Weight: 124.7 kg

DRUGS (1)
  1. ACCUTANE [Suspect]
     Route: 065
     Dates: start: 19840801, end: 19841201

REACTIONS (5)
  - COLITIS ULCERATIVE [None]
  - DEPRESSION [None]
  - ENTEROVESICAL FISTULA [None]
  - GASTROINTESTINAL INJURY [None]
  - PSORIASIS [None]
